FAERS Safety Report 18838659 (Version 2)
Quarter: 2022Q1

REPORT INFORMATION
  Report Type: Spontaneous
  Country: US (occurrence: US)
  Receive Date: 20210203
  Receipt Date: 20220127
  Transmission Date: 20220423
  Serious: No
  Sender: FDA-Public Use
  Company Number: US-ALLERGAN-2048943US

PATIENT
  Sex: Female

DRUGS (13)
  1. BOTOX [Suspect]
     Active Substance: ONABOTULINUMTOXINA
     Indication: Torticollis
     Dosage: 30 UNITS, SINGLE
     Dates: start: 20201119, end: 20201119
  2. BOTOX [Suspect]
     Active Substance: ONABOTULINUMTOXINA
     Dosage: 20 UNITS, SINGLE
     Dates: start: 20201119, end: 20201119
  3. BOTOX [Suspect]
     Active Substance: ONABOTULINUMTOXINA
     Dosage: 20 UNITS, SINGLE
     Dates: start: 20201119, end: 20201119
  4. BOTOX [Suspect]
     Active Substance: ONABOTULINUMTOXINA
     Dosage: 20 UNITS, SINGLE
     Dates: start: 20201119, end: 20201119
  5. BOTOX [Suspect]
     Active Substance: ONABOTULINUMTOXINA
     Dosage: 20 UNITS, SINGLE
     Dates: start: 20201119, end: 20201119
  6. BOTOX [Suspect]
     Active Substance: ONABOTULINUMTOXINA
     Dosage: 20 UNITS, SINGLE
     Dates: start: 20201119, end: 20201119
  7. CLOBETASOL PROPIONATE [Concomitant]
     Active Substance: CLOBETASOL PROPIONATE
  8. EUCRISA [Concomitant]
     Active Substance: CRISABOROLE
  9. MELOXICAM [Concomitant]
     Active Substance: MELOXICAM
     Dosage: 7.5 MG, BID
     Route: 048
  10. PROPRANOLOL HYDROCHLORIDE [Concomitant]
     Active Substance: PROPRANOLOL HYDROCHLORIDE
     Dosage: 20 MG, BID
     Route: 048
  11. RANITIDINE HYDROCHLORIDE [Concomitant]
     Active Substance: RANITIDINE HYDROCHLORIDE
     Dosage: 150 MG, QPM
  12. TIZANIDINE [Concomitant]
     Active Substance: TIZANIDINE
     Dosage: 2 MG, PRN
     Route: 048
  13. TOPIRAMATE [Concomitant]
     Active Substance: TOPIRAMATE
     Dosage: 2 DF, BID
     Route: 048

REACTIONS (4)
  - Posture abnormal [Recovering/Resolving]
  - Head titubation [Recovering/Resolving]
  - Neck pain [Recovering/Resolving]
  - Muscular weakness [Recovering/Resolving]
